FAERS Safety Report 5731842-8 (Version None)
Quarter: 2008Q2

REPORT INFORMATION
  Report Type: 
  Country: None (occurrence: None)
  Receive Date: 20080508
  Receipt Date: 20080430
  Transmission Date: 20081010
  Serious: Yes (Hospitalization)
  Sender: FDA-Public Use
  Company Number: B0512994A

PATIENT
  Age: 51 Year
  Sex: Female

DRUGS (1)
  1. AUGMENTIN '125' [Suspect]
     Indication: DRUG USE FOR UNKNOWN INDICATION
     Route: 042
     Dates: start: 20080205, end: 20080205

REACTIONS (4)
  - MEDICATION ERROR [None]
  - PAINFUL RESPIRATION [None]
  - URTICARIA [None]
  - WRONG DRUG ADMINISTERED [None]
